FAERS Safety Report 14937865 (Version 2)
Quarter: 2019Q3

REPORT INFORMATION
  Report Type: Report from Study
  Country: CA (occurrence: CA)
  Receive Date: 20180525
  Receipt Date: 20190925
  Transmission Date: 20191004
  Serious: Yes (Hospitalization)
  Sender: FDA-Public Use
  Company Number: CA-ROCHE-2128017

PATIENT
  Age: 66 Year
  Sex: Female

DRUGS (14)
  1. ALECENSARO [Suspect]
     Active Substance: ALECTINIB
     Dosage: DOSE REDUCED
     Route: 048
  2. ESOMEPRAZOLE. [Concomitant]
     Active Substance: ESOMEPRAZOLE MAGNESIUM
  3. SENNOKOTT [Concomitant]
  4. QUETIAPINE. [Concomitant]
     Active Substance: QUETIAPINE
  5. LOPERAMIDE [Concomitant]
     Active Substance: LOPERAMIDE
  6. METONIA [Concomitant]
     Active Substance: METOCLOPRAMIDE
  7. CLONAZEPAM. [Concomitant]
     Active Substance: CLONAZEPAM
     Route: 065
  8. RELAXA [MACROGOL 3350] [Concomitant]
  9. CARBOCAL [Concomitant]
     Active Substance: CALCIUM CARBONATE
  10. BISOPROLOL [Concomitant]
     Active Substance: BISOPROLOL
  11. DERMAFLEX HC [Concomitant]
  12. RIVASA [Concomitant]
     Active Substance: ASPIRIN
  13. ALECENSARO [Suspect]
     Active Substance: ALECTINIB
     Indication: ADENOCARCINOMA
     Dosage: START DATE: 11/MAY/2018
     Route: 048
  14. OXYNEO [Concomitant]
     Active Substance: OXYCODONE

REACTIONS (4)
  - Loss of consciousness [Unknown]
  - Asthenia [Unknown]
  - Drug hypersensitivity [Unknown]
  - Fatigue [Unknown]

NARRATIVE: CASE EVENT DATE: 201805
